FAERS Safety Report 9558456 (Version 1)
Quarter: 2013Q3

REPORT INFORMATION
  Report Type: Spontaneous
  Country: US (occurrence: US)
  Receive Date: 20130926
  Receipt Date: 20130926
  Transmission Date: 20140515
  Serious: No
  Sender: FDA-Public Use
  Company Number: US-BIOGENIDEC-2013BI043889

PATIENT
  Age: 53 Year
  Sex: Female

DRUGS (10)
  1. TECFIDERA [Suspect]
     Indication: MULTIPLE SCLEROSIS
     Route: 048
     Dates: start: 20130502, end: 20130508
  2. TECFIDERA [Suspect]
     Indication: MULTIPLE SCLEROSIS
     Route: 048
     Dates: start: 20130509
  3. PROBIOTIC SUPPLEMENT [Concomitant]
  4. AMBIEN [Concomitant]
  5. B12 COMPLEX [Concomitant]
  6. IBUPROFEN [Concomitant]
  7. MELATONIN [Concomitant]
  8. LEVOTHYROXINE [Concomitant]
  9. PREMARIN [Concomitant]
  10. VITAMIN D [Concomitant]

REACTIONS (2)
  - Headache [Not Recovered/Not Resolved]
  - Nausea [Not Recovered/Not Resolved]
